FAERS Safety Report 5934555-2 (Version None)
Quarter: 2008Q4

REPORT INFORMATION
  Report Type: 
  Country: None (occurrence: None)
  Receive Date: 20081029
  Receipt Date: 20081023
  Transmission Date: 20090506
  Serious: Yes (Hospitalization)
  Sender: FDA-Public Use
  Company Number: JP-ABBOTT-08P-087-0483936-00

PATIENT
  Sex: Female
  Weight: 48 kg

DRUGS (8)
  1. SEVOFLURANE [Suspect]
     Indication: INDUCTION OF ANAESTHESIA
     Dosage: TOTAL DAILY DOSE: 80 ML/HR
     Route: 055
     Dates: start: 20070807, end: 20070807
  2. SEVOFLURANE [Suspect]
     Indication: MAINTENANCE OF ANAESTHESIA
     Route: 055
     Dates: start: 20070707, end: 20080707
  3. VECURONIUM BROMIDE [Concomitant]
     Indication: ANAESTHESIA
     Route: 042
     Dates: start: 20070807, end: 20070807
  4. EPHEDRINE HYDROCHLORIDE [Concomitant]
     Indication: ANAESTHESIA
     Route: 042
     Dates: start: 20070807, end: 20070807
  5. FLURBIPROFEN AXETIL [Concomitant]
     Indication: ANAESTHESIA
     Route: 042
     Dates: start: 20070807, end: 20070807
  6. LIDOCAINE HYDROCHLORIDE [Concomitant]
     Indication: ANAESTHESIA
     Route: 042
     Dates: start: 20070807, end: 20070807
  7. FENTANYL CITRATE [Concomitant]
     Indication: ANAESTHESIA
     Route: 042
     Dates: start: 20070807, end: 20070807
  8. OXYGEN [Concomitant]
     Indication: ANAESTHESIA
     Route: 055
     Dates: start: 20070807, end: 20070807

REACTIONS (2)
  - ANGLE CLOSURE GLAUCOMA [None]
  - HEADACHE [None]
